FAERS Safety Report 4958071-X (Version None)
Quarter: 2006Q1

REPORT INFORMATION
  Report Type: 
  Country: None (occurrence: None)
  Receive Date: 20060330
  Receipt Date: 20060209
  Transmission Date: 20060701
  Serious: Yes (Hospitalization, Disabling)
  Sender: FDA-Public Use
  Company Number: US-MERCK-0602USA02508

PATIENT
  Age: 45 Year
  Sex: Female
  Weight: 76 kg

DRUGS (7)
  1. VIOXX [Suspect]
     Indication: COMPLEX REGIONAL PAIN SYNDROME
     Route: 048
     Dates: start: 20000101, end: 20040901
  2. TOPROL-XL [Concomitant]
     Route: 065
  3. LOTREL [Concomitant]
     Route: 065
  4. ACCUPRIL [Concomitant]
     Route: 065
  5. LORTAB [Concomitant]
     Route: 065
  6. NIASPAN [Concomitant]
     Route: 065
  7. ASPIRIN [Concomitant]
     Route: 065

REACTIONS (3)
  - DEPRESSION [None]
  - LOWER LIMB FRACTURE [None]
  - MYOCARDIAL INFARCTION [None]
